FAERS Safety Report 21376645 (Version 1)
Quarter: 2022Q3

REPORT INFORMATION
  Report Type: Report from Study
  Country: US (occurrence: US)
  Receive Date: 20220926
  Receipt Date: 20220926
  Transmission Date: 20221027
  Serious: No
  Sender: FDA-Public Use
  Company Number: US-NOVARTISTESTPH-NVSC2022US214718

PATIENT
  Sex: Female

DRUGS (1)
  1. KESIMPTA [Suspect]
     Active Substance: OFATUMUMAB
     Indication: Multiple sclerosis
     Dosage: UNK
     Route: 058

REACTIONS (7)
  - Pyrexia [Recovering/Resolving]
  - Influenza like illness [Recovering/Resolving]
  - Vision blurred [Recovering/Resolving]
  - Gait disturbance [Unknown]
  - Dysphemia [Unknown]
  - Micturition urgency [Unknown]
  - Asthenia [Unknown]
